FAERS Safety Report 20015408 (Version 1)
Quarter: 2021Q4

REPORT INFORMATION
  Report Type: Spontaneous
  Country: US (occurrence: None)
  Receive Date: 20211030
  Receipt Date: 20211030
  Transmission Date: 20220303
  Serious: Yes (Other)
  Sender: FDA-Public Use
  Company Number: None

PATIENT
  Age: 63 Year
  Sex: Female

DRUGS (1)
  1. REGEN-COV [Suspect]
     Active Substance: CASIRIVIMAB\IMDEVIMAB
     Indication: COVID-19
     Dosage: OTHER FREQUENCY : 4 X 2.5ML;?
     Route: 058
     Dates: start: 20211028, end: 20211028

REACTIONS (5)
  - Loss of consciousness [None]
  - Lethargy [None]
  - Blood pressure decreased [None]
  - Syncope [None]
  - Post procedural complication [None]

NARRATIVE: CASE EVENT DATE: 20211028
